FAERS Safety Report 5656590-4 (Version None)
Quarter: 2008Q1

REPORT INFORMATION
  Report Type: 
  Country: None (occurrence: None)
  Receive Date: 20080219
  Receipt Date: 20071220
  Transmission Date: 20080703
  Serious: No
  Sender: FDA-Public Use
  Company Number: WAES 0712USA08430

PATIENT
  Age: 75 Year
  Sex: Female

DRUGS (4)
  1. JANUVIA [Suspect]
     Indication: TYPE 2 DIABETES MELLITUS
     Dosage: 100 MG/DAILY/PO
     Route: 048
     Dates: start: 20071218, end: 20071218
  2. CHONDROITIN SULFATE SODIUM (+)G [Concomitant]
  3. MAGNESIUM (UNSPECIFIED) [Concomitant]
  4. MULTI-VITAMINS [Concomitant]

REACTIONS (3)
  - DRUG ADMINISTRATION ERROR [None]
  - FLANK PAIN [None]
  - PAIN [None]
